FAERS Safety Report 9008780 (Version 1)
Quarter: 2013Q1

REPORT INFORMATION
  Report Type: Spontaneous
  Country: KR (occurrence: KR)
  Receive Date: 20130111
  Receipt Date: 20130111
  Transmission Date: 20140127
  Serious: Yes (Hospitalization)
  Sender: FDA-Public Use
  Company Number: KR-ASTRAZENECA-2013SE00078

PATIENT
  Age: 37 Year
  Sex: Female
  Weight: 72 kg

DRUGS (5)
  1. BUPIVACAINE [Suspect]
     Route: 037
  2. FENTANYL [Suspect]
     Route: 008
  3. FENTANYL [Suspect]
     Dosage: 350 UG + 0.5 % 50 MG CHIROCAINE + 83 ML SALINE
     Route: 008
  4. LIDOCAINE [Suspect]
     Route: 008
  5. CHIROCAINE [Suspect]
     Dosage: 0.5 % 50 MG+83 ML SALINE/FENTANYL 350 UG
     Route: 008

REACTIONS (1)
  - Myelitis transverse [Recovering/Resolving]
